FAERS Safety Report 8351920 (Version 3)
Quarter: 2012Q4

REPORT INFORMATION
  Report Type: 
  Country: US (occurrence: US)
  Receive Date: 20120124
  Receipt Date: 20121212
  Transmission Date: 20130627
  Serious: Yes (Hospitalization, Other)
  Sender: FDA-Public Use
  Company Number: US-JNJFOC-20120108013

PATIENT
  Sex: Male

DRUGS (9)
  1. LEVAQUIN [Suspect]
     Indication: ANTIBIOTIC THERAPY
     Route: 048
     Dates: start: 2005
  2. LEVAQUIN [Suspect]
     Indication: ANTIBIOTIC THERAPY
     Route: 048
     Dates: start: 2008
  3. LEVAQUIN [Suspect]
     Indication: ANTIBIOTIC THERAPY
     Route: 048
     Dates: start: 2007
  4. LEVAQUIN [Suspect]
     Indication: FISTULA
     Route: 048
     Dates: start: 2005
  5. LEVAQUIN [Suspect]
     Indication: FISTULA
     Route: 048
     Dates: start: 2007
  6. LEVAQUIN [Suspect]
     Indication: FISTULA
     Route: 048
     Dates: start: 2008
  7. LEVAQUIN [Suspect]
     Indication: BACTERIAL INFECTION
     Route: 048
     Dates: start: 2005
  8. LEVAQUIN [Suspect]
     Indication: BACTERIAL INFECTION
     Route: 048
     Dates: start: 2008
  9. LEVAQUIN [Suspect]
     Indication: BACTERIAL INFECTION
     Route: 048
     Dates: start: 2007

REACTIONS (7)
  - Rotator cuff syndrome [Unknown]
  - Ligament rupture [Unknown]
  - Bursitis [Unknown]
  - Meniscus injury [Unknown]
  - Tendon rupture [Unknown]
  - Anxiety [Unknown]
  - Depression [Unknown]
